FAERS Safety Report 6674978-X (Version None)
Quarter: 2010Q1

REPORT INFORMATION
  Report Type: 
  Country: None (occurrence: None)
  Receive Date: 20100331
  Receipt Date: 20091015
  Transmission Date: 20100710
  Serious: Yes (Other)
  Sender: FDA-Public Use
  Company Number: 2009262092

PATIENT
  Age: 80 Year
  Sex: Male

DRUGS (1)
  1. SUTENT [Suspect]

REACTIONS (5)
  - ASTHENIA [None]
  - PAIN [None]
  - SKIN DISCOLOURATION [None]
  - STOMATITIS [None]
  - THROMBOCYTOPENIA [None]
